FAERS Safety Report 17992211 (Version 6)
Quarter: 2020Q4

REPORT INFORMATION
  Report Type: Spontaneous
  Country: US (occurrence: US)
  Receive Date: 20200707
  Receipt Date: 20201125
  Transmission Date: 20210113
  Serious: Yes (Hospitalization, Other)
  Sender: FDA-Public Use
  Company Number: US-B.I. PHARMACEUTICALS,INC./RIDGEFIELD-2020-BI-033267

PATIENT
  Age: 64 Year
  Sex: Female
  Weight: 99 kg

DRUGS (26)
  1. CARVEDILOL. [Concomitant]
     Active Substance: CARVEDILOL
     Indication: PRODUCT USED FOR UNKNOWN INDICATION
  2. ASPIRIN. [Concomitant]
     Active Substance: ASPIRIN
     Indication: PRODUCT USED FOR UNKNOWN INDICATION
  3. CYMBALTA [Concomitant]
     Active Substance: DULOXETINE HYDROCHLORIDE
     Indication: PRODUCT USED FOR UNKNOWN INDICATION
     Dates: end: 202004
  4. MIRAPEX [Suspect]
     Active Substance: PRAMIPEXOLE DIHYDROCHLORIDE
     Dosage: 1.5MG TID
     Route: 065
     Dates: start: 20200629
  5. LASIX [Concomitant]
     Active Substance: FUROSEMIDE
     Indication: PRODUCT USED FOR UNKNOWN INDICATION
  6. MYRBETRIQ [Concomitant]
     Active Substance: MIRABEGRON
     Indication: PRODUCT USED FOR UNKNOWN INDICATION
     Route: 065
  7. LOSARTAN POTASSIUM. [Concomitant]
     Active Substance: LOSARTAN POTASSIUM
     Indication: PRODUCT USED FOR UNKNOWN INDICATION
  8. VITAMIN B12 [VITAMIN B12 NOS] [Concomitant]
     Active Substance: CYANOCOBALAMIN
     Indication: PRODUCT USED FOR UNKNOWN INDICATION
     Dosage: 1000 UG
  9. MIRAPEX [Suspect]
     Active Substance: PRAMIPEXOLE DIHYDROCHLORIDE
     Dates: start: 20200619, end: 20200628
  10. GOCOVRI [Suspect]
     Active Substance: AMANTADINE
     Route: 048
     Dates: start: 20200619, end: 20200628
  11. ISOSORBIDE MONONITRATE. [Concomitant]
     Active Substance: ISOSORBIDE MONONITRATE
     Indication: PRODUCT USED FOR UNKNOWN INDICATION
  12. TYLENOL [Concomitant]
     Active Substance: ACETAMINOPHEN
     Indication: PRODUCT USED FOR UNKNOWN INDICATION
  13. METHOTREXATE. [Concomitant]
     Active Substance: METHOTREXATE
     Indication: PRODUCT USED FOR UNKNOWN INDICATION
     Dates: start: 2014, end: 2019
  14. ALMACONE [Concomitant]
     Active Substance: ALUMINUM HYDROXIDE\DIMETHICONE\MAGNESIUM HYDROXIDE
     Indication: PRODUCT USED FOR UNKNOWN INDICATION
  15. GOCOVRI [Suspect]
     Active Substance: AMANTADINE
     Dosage: INCREASED BACK TO 2 CAPSULE
     Route: 048
     Dates: start: 20200714
  16. RYTARY [Suspect]
     Active Substance: CARBIDOPA\LEVODOPA
     Indication: PARKINSON^S DISEASE
     Dosage: 23.75-95MG
  17. LIPITOR [Concomitant]
     Active Substance: ATORVASTATIN CALCIUM
     Indication: PRODUCT USED FOR UNKNOWN INDICATION
  18. GOCOVRI [Suspect]
     Active Substance: AMANTADINE
     Dates: start: 20200629, end: 20200711
  19. MIRAPEX [Suspect]
     Active Substance: PRAMIPEXOLE DIHYDROCHLORIDE
     Indication: PARKINSON^S DISEASE
     Route: 065
     Dates: end: 20200619
  20. CYMBALTA [Concomitant]
     Active Substance: DULOXETINE HYDROCHLORIDE
     Dates: start: 202004
  21. GOCOVRI [Suspect]
     Active Substance: AMANTADINE
     Indication: DYSKINESIA
     Dosage: EXTENDED-RELEASE CAPSULE
     Route: 048
     Dates: start: 20180405, end: 20200618
  22. POTASSIUM [Concomitant]
     Active Substance: POTASSIUM
     Indication: PRODUCT USED FOR UNKNOWN INDICATION
  23. MULTIPLE VITAMIN [Concomitant]
     Active Substance: VITAMINS
     Indication: PRODUCT USED FOR UNKNOWN INDICATION
  24. APOKYN [Concomitant]
     Active Substance: APOMORPHINE HYDROCHLORIDE
     Indication: PRODUCT USED FOR UNKNOWN INDICATION
  25. TRIAMCINOLONE [Concomitant]
     Active Substance: TRIAMCINOLONE
     Indication: PRODUCT USED FOR UNKNOWN INDICATION
     Dosage: 0.1
  26. IMODIUM A-D [Concomitant]
     Active Substance: LOPERAMIDE HYDROCHLORIDE
     Indication: PRODUCT USED FOR UNKNOWN INDICATION

REACTIONS (43)
  - Hemiplegia [Unknown]
  - Muscle twitching [Unknown]
  - Depression [Unknown]
  - Still^s disease [Recovered/Resolved]
  - Memory impairment [Recovered/Resolved]
  - Pain in extremity [Unknown]
  - Blood pressure abnormal [Unknown]
  - Product dose omission issue [Unknown]
  - Dizziness [Unknown]
  - Movement disorder [Unknown]
  - Dystonia [Unknown]
  - Essential hypertension [Unknown]
  - Urinary tract infection [Unknown]
  - Anaemia [Unknown]
  - Myocardial ischaemia [Unknown]
  - Blood pressure fluctuation [Unknown]
  - Confusional state [Recovered/Resolved]
  - Tooth fracture [Unknown]
  - Incorrect dose administered [Unknown]
  - Glossodynia [Unknown]
  - Arthralgia [Unknown]
  - Anxiety disorder [Unknown]
  - Vascular dementia [Unknown]
  - Insomnia [Unknown]
  - Implantable cardiac monitor insertion [Unknown]
  - Peripheral swelling [Recovered/Resolved]
  - Kidney infection [Unknown]
  - Bradykinesia [Unknown]
  - Bipolar disorder [Unknown]
  - Hyperlipidaemia [Unknown]
  - Hypertonic bladder [Unknown]
  - Ischaemic stroke [Recovered/Resolved]
  - Dysphemia [Recovered/Resolved]
  - Hypoaesthesia [Unknown]
  - Ill-defined disorder [Unknown]
  - Chronic kidney disease [Unknown]
  - Depression [Recovered/Resolved]
  - Parkinson^s disease [Unknown]
  - Peripheral vascular disorder [Unknown]
  - Dyskinesia [Unknown]
  - Myalgia [Unknown]
  - Physical disability [Unknown]
  - Muscle twitching [Unknown]

NARRATIVE: CASE EVENT DATE: 2012
